FAERS Safety Report 6284316-2 (Version None)
Quarter: 2009Q3

REPORT INFORMATION
  Report Type: 
  Country: None (occurrence: None)
  Receive Date: 20090727
  Receipt Date: 20090716
  Transmission Date: 20100115
  Serious: Yes (Other)
  Sender: FDA-Public Use
  Company Number: US-AMGEN-QUU356232

PATIENT
  Sex: Female

DRUGS (4)
  1. ENBREL [Suspect]
     Indication: PSORIASIS
     Dates: start: 20070401
  2. ASPIRIN [Concomitant]
  3. UNSPECIFIED MEDICATION [Concomitant]
  4. ANTIHYPERTENSIVE MEDICATION NOS [Concomitant]

REACTIONS (1)
  - PLATELET COUNT DECREASED [None]
